FAERS Safety Report 5581385-X (Version None)
Quarter: 2008Q1

REPORT INFORMATION
  Report Type: 
  Country: None (occurrence: None)
  Receive Date: 20080104
  Receipt Date: 20071228
  Transmission Date: 20080703
  Serious: Yes (Other)
  Sender: FDA-Public Use
  Company Number: US-JNJFOC-20071201809

PATIENT
  Sex: Female
  Weight: 85.73 kg

DRUGS (11)
  1. REMICADE [Suspect]
     Indication: CROHN'S DISEASE
     Route: 042
  2. IMURAN [Suspect]
     Indication: CROHN'S DISEASE
  3. ENTOCORT EC [Concomitant]
     Indication: CROHN'S DISEASE
  4. PROTONIX [Concomitant]
     Indication: CROHN'S DISEASE
  5. BIRTH CONTROL PILLS [Concomitant]
  6. FLONASE [Concomitant]
  7. VITAMIN CAP [Concomitant]
  8. CALCIUM SUPPLEMENT [Concomitant]
  9. ALEGRA [Concomitant]
  10. CITALOPRAM HYDROBROMIDE [Concomitant]
  11. VITAMIN B-12 [Concomitant]

REACTIONS (1)
  - BREAST CANCER [None]
